APPROVED DRUG PRODUCT: LOPERAMIDE HYDROCHLORIDE
Active Ingredient: LOPERAMIDE HYDROCHLORIDE
Strength: 2MG
Dosage Form/Route: CAPSULE;ORAL
Application: A073122 | Product #001
Applicant: TEVA PHARMACEUTICALS USA INC
Approved: Aug 30, 1991 | RLD: No | RS: No | Type: DISCN